FAERS Safety Report 9720155 (Version 2)
Quarter: 2013Q4

REPORT INFORMATION
  Report Type: Spontaneous
  Country: CA (occurrence: CA)
  Receive Date: 20131129
  Receipt Date: 20131129
  Transmission Date: 20140711
  Serious: Yes (Hospitalization)
  Sender: FDA-Public Use
  Company Number: CA-AMGEN-CANSP2013080310

PATIENT
  Age: 81 Year
  Sex: Female

DRUGS (10)
  1. ENBREL [Suspect]
     Indication: RHEUMATOID ARTHRITIS
     Dosage: 50 MG, QWK
     Route: 058
     Dates: start: 20120515, end: 201306
  2. METHOTREXATE [Suspect]
     Indication: RHEUMATOID ARTHRITIS
     Dosage: 10 MG, UNK
     Route: 048
     Dates: start: 20130327, end: 20131104
  3. PREDNISONE [Concomitant]
     Indication: RHEUMATOID ARTHRITIS
     Dosage: 5 MG, UNK
     Route: 048
     Dates: start: 20071203
  4. ATENOLOL [Concomitant]
     Dosage: 100 MG, X 1
  5. NORVASC [Concomitant]
     Dosage: 10 MG, X 1
  6. HYDROCHLOROTHIAZIDE [Concomitant]
     Dosage: 25 MG, X1
  7. IMIPRAMINE [Concomitant]
     Dosage: UNK, 50 X1
  8. FOSAVANCE [Concomitant]
     Dosage: 70/5600 WEEKLY
  9. LIPITOR [Concomitant]
     Dosage: UNK, 20 X1
  10. CYMBALTA [Concomitant]
     Dosage: 30 UNK, QD

REACTIONS (4)
  - Hypersensitivity [Unknown]
  - Renal impairment [Unknown]
  - Malaise [Unknown]
  - Pneumonia [Recovering/Resolving]
